FAERS Safety Report 11103275 (Version 1)
Quarter: 2015Q2

REPORT INFORMATION
  Report Type: Spontaneous
  Country: KW (occurrence: KW)
  Receive Date: 20150511
  Receipt Date: 20150511
  Transmission Date: 20150821
  Serious: Yes (Death, Hospitalization, Other)
  Sender: FDA-Public Use
  Company Number: KW-PFIZER INC-2015159144

PATIENT
  Age: 71 Year
  Sex: Male

DRUGS (4)
  1. SUTENT [Suspect]
     Active Substance: SUNITINIB MALATE
     Dosage: 25 MG, 4/2 SCHEDULE
     Route: 048
     Dates: start: 200903
  2. SUTENT [Suspect]
     Active Substance: SUNITINIB MALATE
     Dosage: 50 MG, 4/2 SCHEDULE
     Route: 048
  3. SUTENT [Suspect]
     Active Substance: SUNITINIB MALATE
     Dosage: 25 MG, 4/2 SCHEDULE
     Route: 048
  4. SUTENT [Suspect]
     Active Substance: SUNITINIB MALATE
     Indication: CLEAR CELL RENAL CELL CARCINOMA
     Dosage: 50 MG, 4/2 SCHEDULE
     Route: 048
     Dates: start: 200807, end: 20090202

REACTIONS (8)
  - Dyspnoea [Unknown]
  - Clear cell renal cell carcinoma [Fatal]
  - Renal failure [Unknown]
  - Atrioventricular block [Unknown]
  - Disease progression [Fatal]
  - Myocardial ischaemia [Fatal]
  - Cough [Unknown]
  - Haemoptysis [Unknown]
